FAERS Safety Report 25334783 (Version 3)
Quarter: 2025Q3

REPORT INFORMATION
  Report Type: Report from Study
  Country: US (occurrence: US)
  Receive Date: 20250520
  Receipt Date: 20250820
  Transmission Date: 20251020
  Serious: Yes (Other)
  Sender: ABBVIE
  Company Number: US-ABBVIE-6265225

PATIENT
  Sex: Female

DRUGS (1)
  1. HUMIRA [Suspect]
     Active Substance: ADALIMUMAB
     Indication: Product used for unknown indication
     Route: 058
     Dates: start: 20240301

REACTIONS (3)
  - Ocular neoplasm [Not Recovered/Not Resolved]
  - Arthralgia [Recovering/Resolving]
  - Post procedural swelling [Recovering/Resolving]
